FAERS Safety Report 25904467 (Version 1)
Quarter: 2025Q4

REPORT INFORMATION
  Report Type: Spontaneous
  Country: EU (occurrence: EU)
  Receive Date: 20251010
  Receipt Date: 20251010
  Transmission Date: 20260118
  Serious: Yes (Other)
  Sender: AUROBINDO
  Company Number: EU-LRB-01086039

PATIENT
  Age: 21 Year
  Sex: Male
  Weight: 85 kg

DRUGS (1)
  1. DICLOFENAC [Suspect]
     Active Substance: DICLOFENAC
     Indication: Product used for unknown indication
     Dosage: UNK (NO IDEA, SEE ABOVE)
     Route: 065
     Dates: start: 20150815

REACTIONS (1)
  - Hallucination, visual [Recovered/Resolved]
